FAERS Safety Report 5911505-6 (Version None)
Quarter: 2008Q4

REPORT INFORMATION
  Report Type: 
  Country: None (occurrence: None)
  Receive Date: 20081002
  Receipt Date: 20080925
  Transmission Date: 20090506
  Serious: Yes (Other)
  Sender: FDA-Public Use
  Company Number: 2008AL010788

PATIENT

DRUGS (1)
  1. DIGOXIN [Suspect]
     Dosage: 0.25MG, PO
     Route: 048

REACTIONS (1)
  - INJURY [None]
